FAERS Safety Report 5209751-2 (Version None)
Quarter: 2006Q4

REPORT INFORMATION
  Report Type: 
  Country: None (occurrence: None)
  Receive Date: 20061116
  Receipt Date: 20060526
  Transmission Date: 20070319
  Serious: Yes (Hospitalization, Other)
  Sender: FDA-Public Use
  Company Number: 27859

PATIENT
  Age: 60 Year
  Sex: Male
  Weight: 80 kg

DRUGS (1)
  1. CISPLATIN [Suspect]
     Indication: NON-SMALL CELL LUNG CANCER
     Dosage: 60MG/M2/Q3WEEKS/IV
     Route: 042
     Dates: start: 20050419, end: 20050815

REACTIONS (2)
  - DIVERTICULITIS [None]
  - THROMBOCYTOPENIA [None]
